FAERS Safety Report 6072213-7 (Version None)
Quarter: 2009Q1

REPORT INFORMATION
  Report Type: 
  Country: None (occurrence: None)
  Receive Date: 20090206
  Receipt Date: 20090206
  Transmission Date: 20090719
  Serious: Yes (Other)
  Sender: FDA-Public Use
  Company Number: None

PATIENT
  Age: 10 Year
  Sex: Female
  Weight: 58.9676 kg

DRUGS (1)
  1. CEFDINIR [Suspect]
     Indication: DRUG HYPERSENSITIVITY
     Dosage: 250 MG/5 ML 2 TSP BY MOUTH QD PO
     Route: 048
     Dates: start: 20090202, end: 20090204

REACTIONS (4)
  - DIARRHOEA [None]
  - NAUSEA [None]
  - PALLOR [None]
  - VOMITING [None]
